FAERS Safety Report 25430003 (Version 2)
Quarter: 2025Q3

REPORT INFORMATION
  Report Type: Report from Study
  Country: JP (occurrence: JP)
  Receive Date: 20250612
  Receipt Date: 20250710
  Transmission Date: 20251021
  Serious: Yes (Death, Other)
  Sender: GILEAD
  Company Number: JP-GILEAD-2025-0716481

PATIENT
  Age: 68 Year
  Sex: Female

DRUGS (1)
  1. AXICABTAGENE CILOLEUCEL [Suspect]
     Active Substance: AXICABTAGENE CILOLEUCEL
     Indication: Diffuse large B-cell lymphoma
     Route: 065
     Dates: start: 202410, end: 202410

REACTIONS (3)
  - Hepatic cirrhosis [Fatal]
  - Renal failure [Fatal]
  - Cytokine release syndrome [Unknown]
